FAERS Safety Report 10949212 (Version 1)
Quarter: 2015Q1

REPORT INFORMATION
  Report Type: Spontaneous
  Country: US (occurrence: None)
  Receive Date: 20150323
  Receipt Date: 20150323
  Transmission Date: 20150721
  Serious: Yes (Other)
  Sender: FDA-Public Use
  Company Number: None

PATIENT
  Age: 15 Year
  Sex: Female
  Weight: 53.52 kg

DRUGS (5)
  1. FLOVENT [Concomitant]
     Active Substance: FLUTICASONE PROPIONATE
  2. MONTELUKAST [Suspect]
     Active Substance: MONTELUKAST SODIUM
     Indication: ASTHMA
     Dosage: 1 TABLET
     Route: 048
     Dates: start: 20150308, end: 20150310
  3. FLUVIXAMINE [Concomitant]
  4. MULTIVITAMIN WITH IRON [Concomitant]
     Active Substance: IRON\VITAMINS
  5. FLONASE [Concomitant]
     Active Substance: FLUTICASONE PROPIONATE

REACTIONS (4)
  - Crying [None]
  - Depressed mood [None]
  - Anxiety [None]
  - Personality change [None]

NARRATIVE: CASE EVENT DATE: 20150309
